FAERS Safety Report 12438012 (Version 1)
Quarter: 2016Q2

REPORT INFORMATION
  Report Type: Spontaneous
  Country: GB (occurrence: GB)
  Receive Date: 20160606
  Receipt Date: 20160606
  Transmission Date: 20160815
  Serious: Yes (Other)
  Sender: FDA-Public Use
  Company Number: GB-PFIZER INC-2016281532

PATIENT
  Age: 48 Year
  Sex: Female
  Weight: 97 kg

DRUGS (6)
  1. VAGIFEM [Concomitant]
     Active Substance: ESTRADIOL
     Dosage: 1 DF, 1X/DAY (INSERT 1 TO BE TAKEN EACH NIGHT FOR 2 WEEKS)
     Dates: start: 20160519, end: 20160520
  2. METRONIDAZOLE. [Concomitant]
     Active Substance: METRONIDAZOLE
     Dosage: 1 DF, 3X/DAY
     Dates: start: 20160519
  3. TRANEXAMIC ACID. [Suspect]
     Active Substance: TRANEXAMIC ACID
     Dosage: UNK
     Dates: start: 20160425
  4. LANSOPRAZOLE. [Concomitant]
     Active Substance: LANSOPRAZOLE
     Dosage: 1 DF, DAILY
     Dates: start: 20160307
  5. CEFRADINE [Concomitant]
     Active Substance: CEPHRADINE
     Dosage: 1 DF, 4X/DAY
     Dates: start: 20160519
  6. GAVISCON ADVANCE [Concomitant]
     Active Substance: POTASSIUM BICARBONATE\SODIUM ALGINATE
     Dosage: TAKE 5-10ML 4 TIMES A DAY
     Dates: start: 20160413, end: 20160425

REACTIONS (4)
  - Lip swelling [Unknown]
  - Throat irritation [Unknown]
  - Rash maculo-papular [Recovering/Resolving]
  - Paraesthesia [Unknown]

NARRATIVE: CASE EVENT DATE: 20160520
